FAERS Safety Report 7014362-2 (Version None)
Quarter: 2010Q3

REPORT INFORMATION
  Report Type: 
  Country: None (occurrence: None)
  Receive Date: 20100924
  Receipt Date: 20100924
  Transmission Date: 20110219
  Serious: Yes (Hospitalization)
  Sender: FDA-Public Use
  Company Number: None

PATIENT
  Age: 67 Year
  Sex: Male

DRUGS (2)
  1. IBUPROFEN [Suspect]
     Indication: JOINT INJURY
     Dosage: 600MG FOUR TIMES DAILY PO
     Route: 048
     Dates: start: 20091209, end: 20091210
  2. LISINOPRIL [Suspect]
     Dosage: 20 MG DAILY PO
     Route: 048

REACTIONS (1)
  - SWELLING FACE [None]
